FAERS Safety Report 7873020-2 (Version None)
Quarter: 2011Q4

REPORT INFORMATION
  Report Type: 
  Country: None (occurrence: None)
  Receive Date: 20111003
  Receipt Date: 20100915
  Transmission Date: 20120403
  Serious: Yes (Hospitalization, Other)
  Sender: FDA-Public Use
  Company Number: 248615USA

PATIENT
  Age: 43 Year
  Sex: Female

DRUGS (1)
  1. MEDROXYPROGESTERONE ACETATE [Suspect]
     Dates: start: 20090701, end: 20100101

REACTIONS (6)
  - MUSCULOSKELETAL DISCOMFORT [None]
  - VAGINAL HAEMORRHAGE [None]
  - JOINT SWELLING [None]
  - PAIN [None]
  - OEDEMA PERIPHERAL [None]
  - WEIGHT INCREASED [None]
